FAERS Safety Report 5477042-0 (Version None)
Quarter: 2007Q4

REPORT INFORMATION
  Report Type: 
  Country: None (occurrence: None)
  Receive Date: 20071002
  Receipt Date: 20071002
  Transmission Date: 20080405
  Serious: Yes (Hospitalization)
  Sender: FDA-Public Use
  Company Number: None

PATIENT
  Age: 36 Year
  Sex: Female
  Weight: 120.2032 kg

DRUGS (1)
  1. INDOMETHACIN [Suspect]
     Indication: BACK PAIN
     Dosage: 25 MG THREE TIMES A DAY PO
     Route: 048
     Dates: start: 20070726, end: 20070728

REACTIONS (8)
  - ASTHENIA [None]
  - BLOOD PRESSURE DIASTOLIC DECREASED [None]
  - FATIGUE [None]
  - ORAL DISORDER [None]
  - PALLOR [None]
  - SKIN DISCOLOURATION [None]
  - SOMNOLENCE [None]
  - SWELLING FACE [None]
